FAERS Safety Report 21728519 (Version 1)
Quarter: 2022Q4

REPORT INFORMATION
  Report Type: Spontaneous
  Country: US (occurrence: US)
  Receive Date: 20221214
  Receipt Date: 20221214
  Transmission Date: 20230112
  Serious: No
  Sender: FDA-Public Use
  Company Number: US-Dermavant-000241

PATIENT
  Age: 62 Year
  Sex: Male

DRUGS (1)
  1. TAPINAROF [Suspect]
     Active Substance: TAPINAROF
     Indication: Psoriasis
     Dosage: APPLIED ONCE DAILY TO THE CHEST AS NEEDED FOR PSORIASIS
     Route: 061
     Dates: start: 20220713, end: 20220824

REACTIONS (2)
  - Folliculitis [Unknown]
  - Milia [Recovering/Resolving]

NARRATIVE: CASE EVENT DATE: 20221003
